FAERS Safety Report 22225868 (Version 1)
Quarter: 2023Q2

REPORT INFORMATION
  Report Type: Spontaneous
  Country: GB (occurrence: GB)
  Receive Date: 20230419
  Receipt Date: 20230419
  Transmission Date: 20230721
  Serious: Yes (Hospitalization)
  Sender: FDA-Public Use
  Company Number: None

PATIENT
  Age: 83 Year

DRUGS (13)
  1. XARELTO [Suspect]
     Active Substance: RIVAROXABAN
     Indication: Product used for unknown indication
     Dosage: 20 MG
     Route: 048
     Dates: start: 2023
  2. BETAMETHASONE [Concomitant]
     Active Substance: BETAMETHASONE
  3. FINASTERIDE [Concomitant]
     Active Substance: FINASTERIDE
  4. FLUOROURACIL [Concomitant]
     Active Substance: FLUOROURACIL
  5. LOSARTAN [Concomitant]
     Active Substance: LOSARTAN
  6. OMEPRAZOLE [Concomitant]
     Active Substance: OMEPRAZOLE
  7. PROCHLORPERAZINE [Concomitant]
     Active Substance: PROCHLORPERAZINE
  8. TAMSULOSIN [Concomitant]
     Active Substance: TAMSULOSIN
  9. COCODAMOL [Concomitant]
     Active Substance: ACETAMINOPHEN\CODEINE PHOSPHATE
  10. NITROGLYCERIN [Concomitant]
     Active Substance: NITROGLYCERIN
  11. ISOSORBIDE MONONITRATE [Concomitant]
     Active Substance: ISOSORBIDE MONONITRATE
  12. SIMVASTATIN [Concomitant]
     Active Substance: SIMVASTATIN
  13. EZETIMIBE [Concomitant]
     Active Substance: EZETIMIBE

REACTIONS (4)
  - Faeces discoloured [Recovered/Resolved]
  - Melaena [Unknown]
  - Dizziness [Unknown]
  - Fatigue [Unknown]
